FAERS Safety Report 18750300 (Version 1)
Quarter: 2021Q1

REPORT INFORMATION
  Report Type: Report from Study
  Country: US (occurrence: US)
  Receive Date: 20210118
  Receipt Date: 20210118
  Transmission Date: 20210419
  Serious: Yes (Death, Hospitalization)
  Sender: FDA-Public Use
  Company Number: US-TAIHO ONCOLOGY  INC-EU-2020-04338

PATIENT
  Age: 72 Year
  Sex: Male

DRUGS (2)
  1. LONSURF [Suspect]
     Active Substance: TIPIRACIL HYDROCHLORIDE\TRIFLURIDINE
     Indication: RECTAL CANCER
     Dosage: CURRENT CYCLE UNKNOWN
     Route: 048
     Dates: start: 20201213
  2. URSODIOL. [Concomitant]
     Active Substance: URSODIOL

REACTIONS (5)
  - Malaise [Unknown]
  - Inappropriate schedule of product administration [Unknown]
  - Fall [Unknown]
  - Decreased appetite [Unknown]
  - Death [Fatal]

NARRATIVE: CASE EVENT DATE: 20210106
